FAERS Safety Report 5033419-9 (Version None)
Quarter: 2006Q2

REPORT INFORMATION
  Report Type: 
  Country: None (occurrence: None)
  Receive Date: 20060621
  Receipt Date: 20060606
  Transmission Date: 20061013
  Serious: Yes (Death, Hospitalization)
  Sender: FDA-Public Use
  Company Number: US200606001628

PATIENT
  Age: 72 Year
  Sex: Female

DRUGS (1)
  1. ZYPREXA [Suspect]
     Indication: DEMENTIA
     Dates: start: 20050101

REACTIONS (5)
  - ADRENAL INSUFFICIENCY [None]
  - DEHYDRATION [None]
  - DYSPNOEA [None]
  - EATING DISORDER [None]
  - MALAISE [None]
